FAERS Safety Report 23146201 (Version 1)
Quarter: 2023Q4

REPORT INFORMATION
  Report Type: Spontaneous
  Country: FR (occurrence: FR)
  Receive Date: 20231104
  Receipt Date: 20231104
  Transmission Date: 20240109
  Serious: Yes (Other)
  Sender: FDA-Public Use
  Company Number: FR-RENAUDINFR-2022001707

PATIENT
  Age: 94 Year
  Sex: Female
  Weight: 60 kg

DRUGS (1)
  1. LIDOCAINE [Suspect]
     Active Substance: LIDOCAINE
     Indication: Anaesthesia
     Dosage: 5MG/KG
     Route: 065

REACTIONS (2)
  - Loss of consciousness [Recovered/Resolved]
  - Incorrect route of product administration [Recovered/Resolved]
